FAERS Safety Report 7408602-5 (Version None)
Quarter: 2011Q2

REPORT INFORMATION
  Report Type: 
  Country: None (occurrence: None)
  Receive Date: 20110412
  Receipt Date: 20110328
  Transmission Date: 20111010
  Serious: Yes (Other)
  Sender: FDA-Public Use
  Company Number: PHHY2011IT25067

PATIENT
  Age: 48 Year
  Sex: Female

DRUGS (1)
  1. ZOLEDRONIC ACID [Suspect]
     Indication: OSTEOPOROSIS
     Dosage: 5 MG, UNK

REACTIONS (3)
  - PAIN IN JAW [None]
  - OSTEONECROSIS OF JAW [None]
  - GINGIVAL SWELLING [None]
